FAERS Safety Report 8181602-6 (Version None)
Quarter: 2012Q1

REPORT INFORMATION
  Report Type: 
  Country: None (occurrence: None)
  Receive Date: 20120301
  Receipt Date: 20120301
  Transmission Date: 20120608
  Serious: Yes (Hospitalization)
  Sender: FDA-Public Use
  Company Number: None

PATIENT
  Sex: Female
  Weight: 99.5 kg

DRUGS (2)
  1. TAXOL [Suspect]
     Dosage: 354 MG
     Dates: end: 20120216
  2. CISPLATIN [Suspect]
     Dosage: 100 MG
     Dates: end: 20120226

REACTIONS (5)
  - PYREXIA [None]
  - ANAEMIA [None]
  - VOMITING [None]
  - NEUTROPENIA [None]
  - DIARRHOEA [None]
